FAERS Safety Report 8018783-0 (Version None)
Quarter: 2012Q1

REPORT INFORMATION
  Report Type: 
  Country: None (occurrence: None)
  Receive Date: 20120103
  Receipt Date: 20111228
  Transmission Date: 20120608
  Serious: Yes (Hospitalization, Other)
  Sender: FDA-Public Use
  Company Number: US-PFIZER INC-2011315448

PATIENT
  Sex: Female
  Weight: 85.261 kg

DRUGS (8)
  1. POTASSIUM [Concomitant]
     Indication: HYPERTENSION
     Dosage: 10 MEQ, 2X/DAY
  2. GLYBURIDE [Concomitant]
     Indication: DIABETES MELLITUS
     Dosage: 2.5 MG, 2X/DAY
  3. BENAZEPRIL [Concomitant]
     Indication: HYPERTENSION
     Dosage: 10 MG, 2X/DAY
  4. PREMARIN [Suspect]
     Indication: HYSTERECTOMY
     Dosage: UNK
     Route: 048
  5. RANEXA [Concomitant]
     Indication: CARDIAC DISORDER
     Dosage: 500 MG, 2X/DAY
     Route: 048
  6. CARVEDILOL [Concomitant]
     Indication: CARDIAC DISORDER
     Dosage: 6.25 MG, 2X/DAY
  7. ACETYLSALICYLIC ACID [Concomitant]
     Indication: CARDIAC DISORDER
     Dosage: 325 MG, DAILY
  8. METFORMIN [Concomitant]
     Indication: DIABETES MELLITUS
     Dosage: 500 MG, 2X/DAY

REACTIONS (9)
  - HYPOAESTHESIA [None]
  - HYPERTENSION [None]
  - CONVULSION [None]
  - PAIN IN EXTREMITY [None]
  - DYSPNOEA [None]
  - FAECAL VOLUME INCREASED [None]
  - GASTROINTESTINAL DISORDER [None]
  - CHEST DISCOMFORT [None]
  - CONDITION AGGRAVATED [None]
